FAERS Safety Report 18842888 (Version 1)
Quarter: 2021Q1

REPORT INFORMATION
  Report Type: Spontaneous
  Country: PT (occurrence: PT)
  Receive Date: 20210203
  Receipt Date: 20210203
  Transmission Date: 20210419
  Serious: Yes (Other)
  Sender: FDA-Public Use
  Company Number: PT-TEVA-2021-PT-1875397

PATIENT
  Age: 20 Year
  Sex: Female

DRUGS (1)
  1. OFLOXACIN. [Suspect]
     Active Substance: OFLOXACIN
     Route: 048

REACTIONS (1)
  - Drug hypersensitivity [Recovered/Resolved]

NARRATIVE: CASE EVENT DATE: 20090915
